FAERS Safety Report 8832631 (Version 1)
Quarter: 2012Q4

REPORT INFORMATION
  Report Type: Spontaneous
  Country: US (occurrence: None)
  Receive Date: 20121010
  Receipt Date: 20121010
  Transmission Date: 20130627
  Serious: Yes (Life-Threatening, Other)
  Sender: FDA-Public Use
  Company Number: None

PATIENT
  Age: 43 Year
  Sex: Female
  Weight: 79.38 kg

DRUGS (1)
  1. METHYLPREDNISOLONE [Suspect]

REACTIONS (5)
  - Product contamination [None]
  - Headache [None]
  - Nausea [None]
  - Vomiting [None]
  - Dizziness postural [None]
